FAERS Safety Report 25244254 (Version 2)
Quarter: 2025Q3

REPORT INFORMATION
  Report Type: Report from Study
  Country: US (occurrence: US)
  Receive Date: 20250428
  Receipt Date: 20250809
  Transmission Date: 20251021
  Serious: Yes (Other)
  Sender: ALEXION PHARMACEUTICALS
  Company Number: US-AstraZeneca-CH-00854203A

PATIENT
  Sex: Male

DRUGS (2)
  1. TEZEPELUMAB [Suspect]
     Active Substance: TEZEPELUMAB
     Indication: Asthma
     Route: 065
  2. TEZEPELUMAB [Suspect]
     Active Substance: TEZEPELUMAB

REACTIONS (15)
  - Chills [Unknown]
  - Eosinophil count decreased [Unknown]
  - Fatigue [Unknown]
  - Ocular hyperaemia [Unknown]
  - Tinnitus [Unknown]
  - Dizziness [Unknown]
  - Dyspepsia [Unknown]
  - Musculoskeletal stiffness [Unknown]
  - Headache [Unknown]
  - Hypertension [Unknown]
  - Asthma [Unknown]
  - Dyspepsia [Unknown]
  - Oxygen saturation decreased [Unknown]
  - Respiratory tract infection viral [Unknown]
  - Vasomotor rhinitis [Unknown]
